FAERS Safety Report 20771544 (Version 5)
Quarter: 2023Q2

REPORT INFORMATION
  Report Type: Spontaneous
  Country: US (occurrence: None)
  Receive Date: 20220430
  Receipt Date: 20230608
  Transmission Date: 20230722
  Serious: Yes (Other)
  Sender: FDA-Public Use
  Company Number: US-ROCHE-3084296

PATIENT
  Age: 27 Year
  Sex: Male
  Weight: 54 kg

DRUGS (2)
  1. HEMLIBRA [Suspect]
     Active Substance: EMICIZUMAB-KXWH
     Indication: Factor VIII deficiency
     Dosage: 150 MG/0.7 ML
     Route: 058
     Dates: start: 202112
  2. HEMLIBRA [Suspect]
     Active Substance: EMICIZUMAB-KXWH
     Route: 058
     Dates: start: 202208

REACTIONS (6)
  - Renal haemorrhage [Not Recovered/Not Resolved]
  - Testicular haemorrhage [Not Recovered/Not Resolved]
  - Depression [Unknown]
  - Haemorrhage [Unknown]
  - Scrotal pain [Unknown]
  - Scrotal haemorrhage [Recovered/Resolved]

NARRATIVE: CASE EVENT DATE: 20220414
